FAERS Safety Report 9130163 (Version 1)
Quarter: 2013Q1

REPORT INFORMATION
  Report Type: Spontaneous
  Country: ES (occurrence: ES)
  Receive Date: 20130228
  Receipt Date: 20130228
  Transmission Date: 20140127
  Serious: Yes (Hospitalization)
  Sender: FDA-Public Use
  Company Number: ES-ELI_LILLY_AND_COMPANY-ES201302006857

PATIENT
  Sex: Female

DRUGS (1)
  1. FORSTEO [Suspect]
     Dosage: UNK, UNKNOWN
     Route: 065
     Dates: end: 20120121

REACTIONS (8)
  - Dizziness [Unknown]
  - Malaise [Unknown]
  - Hypercholesterolaemia [Unknown]
  - Hyperhidrosis [Unknown]
  - Muscle spasms [Unknown]
  - Fatigue [Unknown]
  - Vision blurred [Unknown]
  - Pollakiuria [Unknown]
